FAERS Safety Report 20467937 (Version 1)
Quarter: 2022Q1

REPORT INFORMATION
  Report Type: Spontaneous
  Country: CA (occurrence: CA)
  Receive Date: 20220214
  Receipt Date: 20220214
  Transmission Date: 20220423
  Serious: Yes (Life-Threatening, Hospitalization, Other)
  Sender: FDA-Public Use
  Company Number: CA-BRISTOL-MYERS SQUIBB COMPANY-BMS-2022-020333

PATIENT
  Age: 78 Year
  Sex: Male

DRUGS (3)
  1. NIVOLUMAB [Suspect]
     Active Substance: NIVOLUMAB
     Indication: Product used for unknown indication
     Dosage: UNK
     Route: 042
  2. YERVOY [Suspect]
     Active Substance: IPILIMUMAB
     Indication: Product used for unknown indication
     Dosage: 50MG/10ML SINGLE USE VIALS
     Route: 042
  3. YERVOY [Suspect]
     Active Substance: IPILIMUMAB
     Dosage: 200MG/40ML SINGLE USE VIALS
     Route: 042

REACTIONS (1)
  - Immune thrombocytopenia [Not Recovered/Not Resolved]
